FAERS Safety Report 9827358 (Version 2)
Quarter: 2014Q1

REPORT INFORMATION
  Report Type: Spontaneous
  Country: PT (occurrence: PT)
  Receive Date: 20140117
  Receipt Date: 20140130
  Transmission Date: 20141002
  Serious: Yes (Hospitalization)
  Sender: FDA-Public Use
  Company Number: PT-B.I. PHARMACEUTICALS,INC./RIDGEFIELD-2014-BI-02091PO

PATIENT
  Age: 68 Year
  Sex: Male

DRUGS (6)
  1. PRADAXA [Suspect]
     Dosage: 220 MG
  2. PRADAXA [Suspect]
     Dosage: 220 MG
  3. ACE INHIBITOR [Concomitant]
  4. STATIN [Concomitant]
  5. HYDROCHLOROTHIAZIDE [Concomitant]
  6. ALPRAZOLAM [Concomitant]

REACTIONS (1)
  - Ischaemic stroke [Recovered/Resolved with Sequelae]
